FAERS Safety Report 5486603-4 (Version None)
Quarter: 2007Q3

REPORT INFORMATION
  Report Type: 
  Country: None (occurrence: None)
  Receive Date: 20070920
  Receipt Date: 20060918
  Transmission Date: 20080115
  Serious: Yes (Hospitalization)
  Sender: FDA-Public Use
  Company Number: 06P-163-0343610-00

PATIENT
  Age: 40 Year
  Sex: Female

DRUGS (2)
  1. DEPAKOTE ER [Suspect]
     Indication: BIPOLAR I DISORDER
     Dosage: 500 MG AT NIGHT, PER ORAL
     Route: 048
     Dates: start: 20041228, end: 20060731
  2. DEPAKOTE ER [Suspect]
     Indication: DEPRESSION
     Dosage: 500 MG AT NIGHT, PER ORAL
     Route: 048
     Dates: start: 20041228, end: 20060731

REACTIONS (1)
  - PANCREATITIS [None]
